FAERS Safety Report 10216550 (Version 1)
Quarter: 2014Q2

REPORT INFORMATION
  Report Type: Spontaneous
  Country: GB (occurrence: GB)
  Receive Date: 20140604
  Receipt Date: 20140604
  Transmission Date: 20141212
  Serious: Yes (Other)
  Sender: FDA-Public Use
  Company Number: GB-NOVOPROD-412091

PATIENT
  Age: 35 Year
  Sex: Male

DRUGS (3)
  1. NOVORAPID [Suspect]
     Indication: TYPE 1 DIABETES MELLITUS
     Dosage: 8-10 UNITS PRE MEAL
     Route: 065
  2. LANTUS [Suspect]
     Indication: TYPE 1 DIABETES MELLITUS
     Dosage: 34 UNITS BEFORE BED
     Route: 065
  3. LANTUS [Suspect]
     Dosage: 38 UNITS
     Route: 065

REACTIONS (5)
  - Diabetic retinopathy [Unknown]
  - Diabetic neuropathy [Unknown]
  - Burning sensation [Unknown]
  - Glycosylated haemoglobin increased [Recovered/Resolved]
  - Hypoglycaemia [Unknown]
